FAERS Safety Report 17596714 (Version 1)
Quarter: 2020Q1

REPORT INFORMATION
  Report Type: Report from Study
  Country: CA (occurrence: CA)
  Receive Date: 20200330
  Receipt Date: 20200330
  Transmission Date: 20200409
  Serious: Yes (Other)
  Sender: FDA-Public Use
  Company Number: CA-ORION CORPORATION ORION PHARMA-TREX2020-1575

PATIENT
  Age: 35 Year
  Sex: Male

DRUGS (7)
  1. COSENTYX [Suspect]
     Active Substance: SECUKINUMAB
     Indication: PSORIASIS
     Route: 058
  2. DOVONEX [Concomitant]
     Active Substance: CALCIPOTRIENE
     Route: 065
  3. CLOTRIMAZOLE. [Concomitant]
     Active Substance: CLOTRIMAZOLE
     Route: 065
  4. METHOTREXATE (TRADE NAME UNKNOWN) [Suspect]
     Active Substance: METHOTREXATE
     Indication: PRODUCT USED FOR UNKNOWN INDICATION
     Route: 065
  5. BETADERM [Concomitant]
     Active Substance: BETAMETHASONE VALERATE
     Route: 065
  6. COSENTYX [Suspect]
     Active Substance: SECUKINUMAB
     Route: 065
  7. COAL TAR. [Concomitant]
     Active Substance: COAL TAR
     Route: 065

REACTIONS (4)
  - Inappropriate schedule of product administration [Unknown]
  - Body surface area increased [Unknown]
  - Psoriasis area severity index increased [Unknown]
  - Pharyngitis streptococcal [Unknown]
